FAERS Safety Report 5764177-8 (Version None)
Quarter: 2008Q2

REPORT INFORMATION
  Report Type: 
  Country: None (occurrence: None)
  Receive Date: 20080605
  Receipt Date: 20080522
  Transmission Date: 20081010
  Serious: Yes (Death, Other)
  Sender: FDA-Public Use
  Company Number: OPER20080090

PATIENT
  Age: 28 Year
  Sex: Male
  Weight: 92.5338 kg

DRUGS (4)
  1. OPANA ER [Suspect]
     Indication: BACK PAIN
     Dates: start: 20080116, end: 20080128
  2. OXYCODONE HCL [Suspect]
  3. DEXTROMETHORPHAN [Suspect]
     Dates: end: 20080128
  4. METHAMPHETAMINE HYDROCHLORIDE [Suspect]
     Dosage: PER ORAL
     Route: 048
     Dates: end: 20080128

REACTIONS (13)
  - ACCIDENTAL DEATH [None]
  - ARTERIOSCLEROSIS CORONARY ARTERY [None]
  - DRUG ABUSE [None]
  - DRUG TOXICITY [None]
  - FOAMING AT MOUTH [None]
  - HEPATIC FIBROSIS [None]
  - HEPATIC STEATOSIS [None]
  - LIVIDITY [None]
  - MULTIPLE DRUG OVERDOSE [None]
  - MUSCLE RIGIDITY [None]
  - PNEUMONIA [None]
  - RESPIRATORY DEPRESSION [None]
  - SCAR [None]
